FAERS Safety Report 24110626 (Version 1)
Quarter: 2024Q3

REPORT INFORMATION
  Report Type: Spontaneous
  Country: ES (occurrence: ES)
  Receive Date: 20240718
  Receipt Date: 20240718
  Transmission Date: 20241017
  Serious: Yes (Hospitalization)
  Sender: NOVARTIS
  Company Number: None

PATIENT
  Age: 84 Year
  Sex: Female

DRUGS (6)
  1. OXCARBAZEPINE [Suspect]
     Active Substance: OXCARBAZEPINE
     Indication: Trigeminal neuralgia
     Dosage: UNK (300.0 MG C/8 HORAS)
     Route: 048
     Dates: start: 20221217
  2. LINAGLIPTIN [Concomitant]
     Active Substance: LINAGLIPTIN
     Indication: Type 2 diabetes mellitus
     Dosage: UNK (5.0 MG C/24 H) (TRAJENTA 5 MG FILM-COATED TABLETS, 30 TABLETS
     Route: 048
     Dates: start: 20210325
  3. VIMPAT [Concomitant]
     Active Substance: LACOSAMIDE
     Indication: Trigeminal neuralgia
     Dosage: UNK (200.0 MG C/12 H), (VIMPAT 200 MG FILM -COATED TABLETS, 56 TABLETS
     Route: 048
     Dates: start: 20210324
  4. LANTUS [Concomitant]
     Active Substance: INSULIN GLARGINE
     Indication: Type 2 diabetes mellitus
     Dosage: UNK (14.0 UI C/24 H) (LANTUS SOLOSTAR 100 UNITS/ML INJECTABLE SOLUTION IN PRE-FILLED PEN, 5 PRE-FILL
     Route: 058
     Dates: start: 20210325
  5. PARACETAMOL CINFA [Concomitant]
     Indication: Myalgia
     Dosage: UNK (1.0 G CO) (1 G EFG EFFERVESCENT TABLETS, 20 TABLETS)
     Route: 048
     Dates: start: 20220420
  6. ATORVASTATIN CALCIUM [Concomitant]
     Active Substance: ATORVASTATIN CALCIUM
     Indication: Hyperlipidaemia
     Dosage: UNK (40.0 MG CE) (COMPRIMIDOS RECUBIERTOS CON PELICULA, 28 COMPRIMIDOS)
     Route: 048
     Dates: start: 20210324

REACTIONS (2)
  - Inappropriate antidiuretic hormone secretion [Recovered/Resolved]
  - Hyponatraemia [Recovered/Resolved]

NARRATIVE: CASE EVENT DATE: 20230517
